FAERS Safety Report 7684080-6 (Version None)
Quarter: 2011Q3

REPORT INFORMATION
  Report Type: 
  Country: None (occurrence: None)
  Receive Date: 20110815
  Receipt Date: 20110623
  Transmission Date: 20111222
  Serious: Yes (Other)
  Sender: FDA-Public Use
  Company Number: US-AMGEN-USASP2011032208

PATIENT
  Sex: Female

DRUGS (1)
  1. PROLIA [Suspect]
     Indication: PRODUCT USED FOR UNKNOWN INDICATION
     Dosage: UNK

REACTIONS (8)
  - PRURITUS [None]
  - BLISTER [None]
  - RASH [None]
  - ABDOMINAL PAIN UPPER [None]
  - IMMUNE SYSTEM DISORDER [None]
  - DRY SKIN [None]
  - MYASTHENIA GRAVIS [None]
  - MALAISE [None]
